FAERS Safety Report 7516503-7 (Version None)
Quarter: 2011Q2

REPORT INFORMATION
  Report Type: 
  Country: None (occurrence: None)
  Receive Date: 20110601
  Receipt Date: 20110523
  Transmission Date: 20111010
  Serious: Yes (Death)
  Sender: FDA-Public Use
  Company Number: A0927030A

PATIENT
  Age: 69 Year
  Sex: Female
  Weight: 45.5 kg

DRUGS (5)
  1. CALCIUM CARBONATE [Concomitant]
  2. TYKERB [Suspect]
     Dosage: 1500MG PER DAY
     Route: 048
     Dates: start: 20101216
  3. FEMARA [Concomitant]
  4. ZOLPIDEM TARTRATE [Concomitant]
  5. OXYCODONE HCL [Concomitant]

REACTIONS (1)
  - DEATH [None]
